FAERS Safety Report 8581702-2 (Version None)
Quarter: 2012Q3

REPORT INFORMATION
  Report Type: 
  Country: None (occurrence: None)
  Receive Date: 20120727
  Receipt Date: 20120720
  Transmission Date: 20120928
  Serious: Yes (Other)
  Sender: FDA-Public Use
  Company Number: GER/UKI/12/0025126

PATIENT
  Age: 35 Year
  Sex: Male
  Weight: 78.46 kg

DRUGS (4)
  1. PAROXETINE HYDROCHLORIDE [Suspect]
     Indication: PANIC ATTACK
     Dosage: 30 MG, ORAL
     Route: 048
  2. PAROXETINE HYDROCHLORIDE [Suspect]
     Indication: DEPRESSION
     Dosage: 30 MG, ORAL
     Route: 048
  3. FLUOXETINE [Suspect]
     Indication: PANIC ATTACK
     Dosage: 20 MG, ORAL
     Route: 048
     Dates: start: 20120610, end: 20120612
  4. FLUOXETINE [Suspect]
     Indication: DEPRESSION
     Dosage: 20 MG, ORAL
     Route: 048
     Dates: start: 20120610, end: 20120612

REACTIONS (6)
  - HYPOAESTHESIA [None]
  - MUSCULAR WEAKNESS [None]
  - DIZZINESS [None]
  - DYSARTHRIA [None]
  - COGNITIVE DISORDER [None]
  - WITHDRAWAL SYNDROME [None]
